FAERS Safety Report 24868216 (Version 1)
Quarter: 2025Q1

REPORT INFORMATION
  Report Type: Spontaneous
  Country: US (occurrence: None)
  Receive Date: 20250119
  Receipt Date: 20250119
  Transmission Date: 20250409
  Serious: Yes (Disabling)
  Sender: FDA-CTU
  Company Number: None

PATIENT
  Age: 66 Year
  Sex: Female
  Weight: 69.3 kg

DRUGS (3)
  1. NEXLETOL [Suspect]
     Active Substance: BEMPEDOIC ACID
     Indication: Low density lipoprotein increased
     Dosage: 30 TABLETS DAILY ORAL
     Route: 048
     Dates: start: 20250107, end: 20250112
  2. SYNTHROID [Concomitant]
     Active Substance: LEVOTHYROXINE SODIUM
  3. OTC allergy medication [Concomitant]

REACTIONS (5)
  - Pruritus [None]
  - Rash [None]
  - Contusion [None]
  - Skin discolouration [None]
  - Skin exfoliation [None]

NARRATIVE: CASE EVENT DATE: 20250113
